FAERS Safety Report 4864942-5 (Version None)
Quarter: 2005Q4

REPORT INFORMATION
  Report Type: 
  Country: None (occurrence: None)
  Receive Date: 20051201
  Receipt Date: 20050716
  Transmission Date: 20060501
  Serious: No
  Sender: FDA-Public Use
  Company Number: 2005PV000442

PATIENT
  Age: 61 Year
  Sex: Male
  Weight: 99.3377 kg

DRUGS (7)
  1. BYETTA [Suspect]
     Indication: DIABETES MELLITUS NON-INSULIN-DEPENDENT
     Dosage: 5 MCG;BID;SC
     Route: 058
     Dates: start: 20050712
  2. ACTOS [Concomitant]
  3. CARDIZEM [Concomitant]
  4. TRICOR [Concomitant]
  5. AMARYL [Concomitant]
  6. LANTUS [Concomitant]
  7. ACTOS [Concomitant]

REACTIONS (3)
  - GAIT DISTURBANCE [None]
  - HYPERSOMNIA [None]
  - NAUSEA [None]
